FAERS Safety Report 19854723 (Version 1)
Quarter: 2021Q3

REPORT INFORMATION
  Report Type: Spontaneous
  Country: DE (occurrence: DE)
  Receive Date: 20210920
  Receipt Date: 20210920
  Transmission Date: 20211014
  Serious: Yes (Other)
  Sender: FDA-Public Use
  Company Number: DE-TEVA-2021-DE-1953120

PATIENT
  Age: 29 Year
  Sex: Female
  Weight: 47 kg

DRUGS (9)
  1. URSOFALK [Concomitant]
     Active Substance: URSODIOL
     Indication: PRODUCT USED FOR UNKNOWN INDICATION
     Dosage: 3 MILLIGRAM DAILY; ADDITIONAL INFO : TRIMESTER: UNKNOWN TRIMESTER
     Route: 048
  2. SERTRALINE [Concomitant]
     Active Substance: SERTRALINE HYDROCHLORIDE
     Indication: DEPRESSION
     Dosage: 75 MILLIGRAM DAILY; ADDITIONAL INFO : 15. ? 34.6. GESTATIONAL WEEK
     Route: 048
     Dates: start: 20200327, end: 20200813
  3. SALOFALK [Concomitant]
     Indication: CROHN^S DISEASE
     Dosage: 3000 MILLIGRAM DAILY; ADDITIONAL INFO : 23.6. ? 34.6. GESTATIONAL WEEK
     Route: 048
     Dates: start: 20200528, end: 20200813
  4. MST [Concomitant]
     Indication: CROHN^S DISEASE
     Dosage: ADDITIONAL INFO : 0. ? 5.3. GESTATIONAL WEEK
     Route: 048
     Dates: start: 20191213, end: 20200120
  5. ESOMEPRAZOLE. [Concomitant]
     Active Substance: ESOMEPRAZOLE MAGNESIUM
     Indication: GASTRITIS PROPHYLAXIS
     Dosage: 40 [MG / D (IF NECESSARY)], UNIT DOSE : 40 MG ,  ADDITIONAL INFO : 0. ? 34.6. GESTATIONAL WEEK
     Route: 048
     Dates: start: 20191213, end: 20200813
  6. ENTYVIO [Concomitant]
     Active Substance: VEDOLIZUMAB
     Indication: CROHN^S DISEASE
     Dosage: ADDITIONAL INFO : 0. ? 19. GESTATIONAL WEEK
     Route: 041
  7. CANNABIDIOL [Concomitant]
     Active Substance: CANNABIDIOL
     Indication: CROHN^S DISEASE
     Dosage: ADDITIONAL INFO : 0. ? 5.3. GESTATIONAL WEEK
     Route: 048
     Dates: start: 20191213, end: 20200120
  8. STAPHYLEX [Concomitant]
     Active Substance: FLUCLOXACILLIN
     Indication: BACTERIAL INFECTION
     Dosage: BACTERIAL INFECTION OF THE PORT (STAPH. AUREUS) , ADDITIONAL INFO : 29.1. ? 30.3. GESTATIONAL WEEK
     Route: 042
     Dates: start: 20200704, end: 20200713
  9. PREDNISOLON [Suspect]
     Active Substance: PREDNISOLONE
     Indication: CROHN^S DISEASE
     Dosage: 50 [MG / D (UP TO 8)] / DOSE WAS THEN SLOWLY REDUCED. AT THE END OF PREGNANCY: 8 MG / D , ADDITIONAL
     Route: 048
     Dates: start: 20200423, end: 20200813

REACTIONS (2)
  - Gestational diabetes [Recovered/Resolved]
  - Exposure during pregnancy [Unknown]
